FAERS Safety Report 4422530-9 (Version None)
Quarter: 2004Q3

REPORT INFORMATION
  Report Type: 
  Country: None (occurrence: None)
  Receive Date: 20040806
  Receipt Date: 20040723
  Transmission Date: 20050211
  Serious: Yes (Hospitalization)
  Sender: FDA-Public Use
  Company Number: 201883

PATIENT
  Age: 39 Year
  Sex: Male
  Weight: 45.3597 kg

DRUGS (4)
  1. AVONEX [Suspect]
     Indication: MULTIPLE SCLEROSIS
     Dosage: 30 MCG QW IM
     Route: 030
  2. BACLOFEN [Concomitant]
  3. MULTIVITAMIN [Concomitant]
  4. CITRUCEL [Concomitant]

REACTIONS (6)
  - CHOLELITHIASIS [None]
  - MULTIPLE SCLEROSIS [None]
  - PARALYSIS [None]
  - SPEECH DISORDER [None]
  - THROAT LESION [None]
  - URINARY TRACT INFECTION [None]
